FAERS Safety Report 9664128 (Version 1)
Quarter: 2013Q4

REPORT INFORMATION
  Report Type: Spontaneous
  Country: US (occurrence: None)
  Receive Date: 20131030
  Receipt Date: 20131030
  Transmission Date: 20140711
  Serious: No
  Sender: FDA-Public Use
  Company Number: None

PATIENT
  Age: 38 Year
  Sex: Female
  Weight: 68.49 kg

DRUGS (1)
  1. CLIMARA [Suspect]
     Indication: HORMONE REPLACEMENT THERAPY
     Dosage: 1 PATCH WEEKLY TO SKIN
     Route: 061
     Dates: start: 2000

REACTIONS (4)
  - Application site erythema [None]
  - Application site swelling [None]
  - Skin haemorrhage [None]
  - Skin injury [None]
